FAERS Safety Report 9402433 (Version 1)
Quarter: 2013Q3

REPORT INFORMATION
  Report Type: Spontaneous
  Country: US (occurrence: None)
  Receive Date: 20130712
  Receipt Date: 20130712
  Transmission Date: 20140515
  Serious: Yes (Disabling)
  Sender: FDA-Public Use
  Company Number: None

PATIENT
  Age: 41 Year
  Sex: Male
  Weight: 83.92 kg

DRUGS (8)
  1. BOTOX ?UNSURE UNSURE [Suspect]
     Indication: MIGRAINE
     Dosage: ON THAT DATE
     Dates: start: 20130522, end: 20130522
  2. NEURONTIN 300MG [Concomitant]
  3. EFFEXOR XR [Concomitant]
  4. LISINOPRIL [Concomitant]
  5. ELAVIL [Concomitant]
  6. NADOLOL [Concomitant]
  7. MAXALT [Concomitant]
  8. IMITREX [Concomitant]

REACTIONS (2)
  - Dizziness [None]
  - Deafness neurosensory [None]
